FAERS Safety Report 7749955-8 (Version None)
Quarter: 2011Q3

REPORT INFORMATION
  Report Type: 
  Country: None (occurrence: None)
  Receive Date: 20110912
  Receipt Date: 20110831
  Transmission Date: 20111222
  Serious: Yes (Other)
  Sender: FDA-Public Use
  Company Number: 2009SP010930

PATIENT
  Age: 50 Year
  Sex: Male

DRUGS (8)
  1. NEXIUM [Concomitant]
  2. BENICAR [Concomitant]
  3. KEPPRA [Concomitant]
  4. LACTULOSE [Concomitant]
  5. POTASSIUM [Concomitant]
  6. PEG-INTRON [Suspect]
     Indication: HEPATITIS C
     Dosage: ;SC; 120 MG;QW;
     Route: 058
     Dates: start: 20090309
  7. LOSARTAN POTASSIUM [Concomitant]
  8. RIBAVIRIN [Suspect]
     Indication: HEPATITIS C
     Dosage: 800 MG;TID;PO; 600 MG;BID
     Route: 048
     Dates: start: 20090309

REACTIONS (11)
  - PHOTOPHOBIA [None]
  - HALO VISION [None]
  - IRRITABILITY [None]
  - MIGRAINE [None]
  - BLOOD SODIUM DECREASED [None]
  - CONVULSION [None]
  - OPTIC NEUROPATHY [None]
  - BLINDNESS [None]
  - AMMONIA INCREASED [None]
  - ALTERED VISUAL DEPTH PERCEPTION [None]
  - VISUAL FIELD DEFECT [None]
